FAERS Safety Report 15207363 (Version 1)
Quarter: 2018Q3

REPORT INFORMATION
  Report Type: Spontaneous
  Country: GB (occurrence: GB)
  Receive Date: 20180727
  Receipt Date: 20180727
  Transmission Date: 20181010
  Serious: Yes (Disabling, Other)
  Sender: FDA-Public Use
  Company Number: GB-009507513-1807GBR011105

PATIENT
  Age: 22 Year
  Sex: Female
  Weight: 63 kg

DRUGS (2)
  1. IMPLANON [Suspect]
     Active Substance: ETONOGESTREL
     Indication: CONTRACEPTION
     Dosage: UNK
     Route: 059
     Dates: end: 20110926
  2. DEPO?PROVERA [Suspect]
     Active Substance: MEDROXYPROGESTERONE ACETATE
     Indication: CONTRACEPTION
     Dosage: UNK
     Dates: start: 20121108, end: 2013

REACTIONS (38)
  - Menstruation irregular [Unknown]
  - Maternal exposure before pregnancy [Unknown]
  - Weight increased [Unknown]
  - Tension headache [Unknown]
  - Depression [Recovered/Resolved]
  - Adjustment disorder [Unknown]
  - Urinary tract infection [Unknown]
  - Headache [Unknown]
  - Road traffic accident [Unknown]
  - Musculoskeletal chest pain [Recovering/Resolving]
  - Costochondritis [Unknown]
  - Suicidal ideation [Recovered/Resolved]
  - Depressed mood [Recovered/Resolved]
  - Apathy [Unknown]
  - Fatigue [Unknown]
  - Constipation [Unknown]
  - Menstruation irregular [Unknown]
  - Insomnia [Unknown]
  - Amnesia [Unknown]
  - Acne [Unknown]
  - Chlamydial infection [Unknown]
  - Amenorrhoea [Recovered/Resolved]
  - Hypomenorrhoea [Unknown]
  - Musculoskeletal pain [Unknown]
  - Contusion [Unknown]
  - Anaemia [Unknown]
  - Coital bleeding [Unknown]
  - Migraine [Unknown]
  - Arthralgia [Recovering/Resolving]
  - Back pain [Unknown]
  - Paraesthesia [Unknown]
  - Haematochezia [Unknown]
  - Muscle spasms [Unknown]
  - Fatigue [Unknown]
  - Poor quality sleep [Unknown]
  - Anxiety [Recovered/Resolved]
  - Complication of pregnancy [Unknown]
  - Back pain [Unknown]

NARRATIVE: CASE EVENT DATE: 2010
